FAERS Safety Report 10396793 (Version 2)
Quarter: 2014Q3

REPORT INFORMATION
  Report Type: Spontaneous
  Country: US (occurrence: US)
  Receive Date: 20140820
  Receipt Date: 20140909
  Transmission Date: 20150326
  Serious: Yes (Other)
  Sender: FDA-Public Use
  Company Number: US-TEVA-502674USA

PATIENT
  Sex: Male

DRUGS (1)
  1. PROAIR HFA [Suspect]
     Active Substance: ALBUTEROL SULFATE

REACTIONS (5)
  - Asthma [Unknown]
  - Device failure [Unknown]
  - Loss of consciousness [Unknown]
  - Dyspnoea [Unknown]
  - Medication error [Unknown]
